FAERS Safety Report 9690916 (Version 1)
Quarter: 2013Q4

REPORT INFORMATION
  Report Type: Spontaneous
  Country: US (occurrence: None)
  Receive Date: 20131114
  Receipt Date: 20131114
  Transmission Date: 20140711
  Serious: Yes (Other)
  Sender: FDA-Public Use
  Company Number: None

PATIENT
  Age: 82 Year
  Sex: Male

DRUGS (1)
  1. XTANDI 40MG ASTELLAS [Suspect]
     Route: 048
     Dates: start: 20130731, end: 20131111

REACTIONS (6)
  - Pain in extremity [None]
  - Back pain [None]
  - Nasopharyngitis [None]
  - Dyspnoea [None]
  - Neuropathy peripheral [None]
  - Asthenia [None]
